FAERS Safety Report 8137999-6 (Version None)
Quarter: 2012Q1

REPORT INFORMATION
  Report Type: 
  Country: None (occurrence: None)
  Receive Date: 20120215
  Receipt Date: 20120210
  Transmission Date: 20120608
  Serious: Yes (Other)
  Sender: FDA-Public Use
  Company Number: GB-PFIZER INC-2012037921

PATIENT
  Age: 78 Year
  Sex: Female

DRUGS (6)
  1. SIMVASTATIN [Concomitant]
     Indication: HYPERLIPIDAEMIA
     Dosage: 40 MG, UNK
     Route: 048
     Dates: start: 20111201
  2. SERTRALINE HYDROCHLORIDE [Suspect]
     Indication: DEPRESSION
     Dosage: 50 MG, UNK
     Route: 048
     Dates: start: 20111230, end: 20120113
  3. LOPERAMIDE [Concomitant]
     Indication: FUNCTIONAL GASTROINTESTINAL DISORDER
     Dosage: 2 MG, UNK
     Route: 048
  4. COLECALCIFEROL [Concomitant]
     Indication: BONE DISORDER
     Dosage: UNK
     Route: 048
  5. ZOPICLONE [Concomitant]
     Indication: INSOMNIA
     Dosage: 3.75 MG, UNK
     Route: 048
     Dates: end: 20120130
  6. PREGABALIN [Concomitant]
     Indication: PAIN
     Dosage: 150 MG, UNK
     Route: 048
     Dates: start: 20110501

REACTIONS (3)
  - LIP BLISTER [None]
  - ERYTHEMA MULTIFORME [None]
  - OROPHARYNGEAL BLISTERING [None]
